FAERS Safety Report 10088279 (Version 1)
Quarter: 2014Q2

REPORT INFORMATION
  Report Type: Spontaneous
  Country: TW (occurrence: TW)
  Receive Date: 20140421
  Receipt Date: 20140421
  Transmission Date: 20141212
  Serious: Yes (Hospitalization)
  Sender: FDA-Public Use
  Company Number: TW-ACCORD-023144

PATIENT
  Age: 51 Year
  Sex: Female

DRUGS (3)
  1. VALPROIC ACID [Concomitant]
     Indication: BIPOLAR DISORDER
  2. QUETIAPINE [Suspect]
     Indication: BIPOLAR DISORDER
     Dosage: THE PATIENT INITIALLY TOOK 600 MG AT BEDTIME
  3. FLURAZEPAM [Concomitant]
     Indication: BIPOLAR DISORDER

REACTIONS (2)
  - Hypertriglyceridaemia [Recovered/Resolved]
  - Pancreatitis acute [Recovered/Resolved]
